FAERS Safety Report 25994988 (Version 2)
Quarter: 2025Q4

REPORT INFORMATION
  Report Type: Spontaneous
  Country: CA (occurrence: CA)
  Receive Date: 20251104
  Receipt Date: 20251204
  Transmission Date: 20260118
  Serious: Yes (Congenital Anomaly)
  Sender: ASTELLAS
  Company Number: CA-ASTELLAS-2025-AER-059059

PATIENT

DRUGS (90)
  1. MYRBETRIQ [Suspect]
     Active Substance: MIRABEGRON
     Indication: Product used for unknown indication
     Dosage: EXTENDEDRELEASE
     Route: 065
  2. MYRBETRIQ [Suspect]
     Active Substance: MIRABEGRON
     Dosage: EXTENDEDRELEASE
     Route: 065
  3. ADALIMUMAB [Suspect]
     Active Substance: ADALIMUMAB
     Indication: Product used for unknown indication
     Dosage: SOLUTION SUBCUTANEOUS
     Route: 058
  4. METHYLPREDNISOLONE [Suspect]
     Active Substance: METHYLPREDNISOLONE
     Indication: Foetal exposure during pregnancy
     Route: 065
  5. ACETAMINOPHEN [Suspect]
     Active Substance: ACETAMINOPHEN
     Indication: Foetal exposure during pregnancy
     Route: 065
  6. ACETAMINOPHEN AND CODEINE [Suspect]
     Active Substance: ACETAMINOPHEN\CODEINE PHOSPHATE
     Indication: Foetal exposure during pregnancy
     Route: 065
  7. ACTEMRA [Suspect]
     Active Substance: TOCILIZUMAB
     Indication: Foetal exposure during pregnancy
     Route: 065
  8. AIMOVIG [Suspect]
     Active Substance: ERENUMAB-AOOE
     Indication: Foetal exposure during pregnancy
     Route: 065
  9. ALENDRONATE SODIUM [Suspect]
     Active Substance: ALENDRONATE SODIUM
     Indication: Foetal exposure during pregnancy
     Route: 065
  10. LEFLUNOMIDE [Suspect]
     Active Substance: LEFLUNOMIDE
     Indication: Foetal exposure during pregnancy
     Route: 065
  11. PREDNISONE [Suspect]
     Active Substance: PREDNISONE
     Indication: Foetal exposure during pregnancy
     Route: 065
  12. ARAVA [Suspect]
     Active Substance: LEFLUNOMIDE
     Indication: Foetal exposure during pregnancy
     Route: 065
  13. AZATHIOPRINE [Suspect]
     Active Substance: AZATHIOPRINE
     Indication: Foetal exposure during pregnancy
     Route: 065
  14. BERINERT [Suspect]
     Active Substance: HUMAN C1-ESTERASE INHIBITOR
     Indication: Foetal exposure during pregnancy
     Route: 065
  15. BOTULINUM TOXIN TYPE A [Suspect]
     Active Substance: BOTULINUM TOXIN TYPE A
     Indication: Foetal exposure during pregnancy
     Dosage: POWDER FOR SOLUTION
     Route: 065
  16. BUTRANS [Suspect]
     Active Substance: BUPRENORPHINE
     Indication: Foetal exposure during pregnancy
     Dosage: PATCH
     Route: 065
  17. CALCIUM ASCORBATE [Suspect]
     Active Substance: CALCIUM ASCORBATE
     Indication: Foetal exposure during pregnancy
     Route: 065
  18. CALCIUM CITRATE [Suspect]
     Active Substance: CALCIUM CITRATE
     Indication: Foetal exposure during pregnancy
     Route: 065
  19. CALCIUM GLUBIONATE [Suspect]
     Active Substance: CALCIUM GLUBIONATE
     Indication: Foetal exposure during pregnancy
     Route: 065
  20. CANDESARTAN [Suspect]
     Active Substance: CANDESARTAN
     Indication: Foetal exposure during pregnancy
     Route: 065
  21. CELEBREX [Suspect]
     Active Substance: CELECOXIB
     Indication: Foetal exposure during pregnancy
     Route: 065
  22. CETIRIZINE [Suspect]
     Active Substance: CETIRIZINE HYDROCHLORIDE
     Indication: Foetal exposure during pregnancy
     Route: 065
  23. CHLORHEXIDINE GLUCONATE\ISOPROPYL ALCOHOL [Suspect]
     Active Substance: CHLORHEXIDINE GLUCONATE\ISOPROPYL ALCOHOL
     Indication: Foetal exposure during pregnancy
     Route: 065
  24. CHOLECALCIFEROL [Suspect]
     Active Substance: CHOLECALCIFEROL
     Indication: Foetal exposure during pregnancy
     Route: 065
  25. CIMZIA [Suspect]
     Active Substance: CERTOLIZUMAB PEGOL
     Indication: Foetal exposure during pregnancy
     Route: 065
  26. CIMZIA [Suspect]
     Active Substance: CERTOLIZUMAB PEGOL
     Dosage: MOTHER^S  ROUTE: SUBCUTANEOUS
     Route: 058
  27. CORTISONE ACETATE [Suspect]
     Active Substance: CORTISONE ACETATE
     Indication: Foetal exposure during pregnancy
     Route: 065
  28. COSENTYX [Suspect]
     Active Substance: SECUKINUMAB
     Indication: Foetal exposure during pregnancy
     Route: 065
  29. CUPRIC OXIDE\FOLIC ACID\NIACIN\ZINC OXIDE [Suspect]
     Active Substance: CUPRIC OXIDE\FOLIC ACID\NIACIN\ZINC OXIDE
     Indication: Foetal exposure during pregnancy
     Route: 065
  30. DESOXIMETASONE [Suspect]
     Active Substance: DESOXIMETASONE
     Indication: Foetal exposure during pregnancy
     Route: 065
  31. DICLOFENAC [Suspect]
     Active Substance: DICLOFENAC
     Indication: Foetal exposure during pregnancy
     Route: 065
  32. DICLOFENAC POTASSIUM [Suspect]
     Active Substance: DICLOFENAC POTASSIUM
     Indication: Foetal exposure during pregnancy
     Route: 065
  33. DOMPERIDONE MALEATE [Suspect]
     Active Substance: DOMPERIDONE MALEATE
     Indication: Foetal exposure during pregnancy
     Route: 065
  34. ENBREL [Suspect]
     Active Substance: ETANERCEPT
     Indication: Foetal exposure during pregnancy
     Route: 065
  35. ERGOCALCIFEROL [Suspect]
     Active Substance: ERGOCALCIFEROL
     Indication: Foetal exposure during pregnancy
     Route: 065
  36. FLUMETHASONE [Suspect]
     Active Substance: FLUMETHASONE
     Indication: Foetal exposure during pregnancy
     Route: 065
  37. FLUMETHASONE PIVALATE [Suspect]
     Active Substance: FLUMETHASONE PIVALATE
     Indication: Foetal exposure during pregnancy
     Route: 065
  38. FOLIC ACID [Suspect]
     Active Substance: FOLIC ACID
     Indication: Foetal exposure during pregnancy
     Route: 065
  39. FOSAMAX [Suspect]
     Active Substance: ALENDRONATE SODIUM
     Indication: Foetal exposure during pregnancy
     Route: 065
  40. HAIR KERATIN AMINO ACIDS GOLD COMPLEX [Suspect]
     Active Substance: HAIR KERATIN AMINO ACIDS GOLD COMPLEX
     Indication: Foetal exposure during pregnancy
     Route: 065
  41. GOLD SODIUM THIOMALATE [Suspect]
     Active Substance: GOLD SODIUM THIOMALATE
     Indication: Foetal exposure during pregnancy
     Dosage: MOTHER ROUTE OF ADMIN INTRAMUSCULAR
     Route: 030
  42. HUMIRA [Suspect]
     Active Substance: ADALIMUMAB
     Indication: Foetal exposure during pregnancy
     Dosage: SOLUTION SUBCUTANEOUS
     Route: 065
  43. HUMIRA [Suspect]
     Active Substance: ADALIMUMAB
     Dosage: MOTHER ROUTE OF ADMIN SUBCUTANEOUS, SOLUTION SUBCUTANEOUS
     Route: 058
  44. HYDROCORTISONE PROBUTATE [Suspect]
     Active Substance: HYDROCORTISONE PROBUTATE
     Indication: Foetal exposure during pregnancy
     Route: 065
  45. HYDROXYCHLOROQUINE [Suspect]
     Active Substance: HYDROXYCHLOROQUINE
     Indication: Foetal exposure during pregnancy
     Route: 065
  46. HYDROXYCHLOROQUINE [Suspect]
     Active Substance: HYDROXYCHLOROQUINE
     Route: 065
  47. HYDROXYCHLOROQUINE SULFATE [Suspect]
     Active Substance: HYDROXYCHLOROQUINE SULFATE
     Indication: Foetal exposure during pregnancy
     Route: 065
  48. HYRIMOZ [Suspect]
     Active Substance: ADALIMUMAB-ADAZ
     Indication: Foetal exposure during pregnancy
     Dosage: SOLUTION SUBCUTANEOUS
     Route: 065
  49. INFLIXIMAB [Suspect]
     Active Substance: INFLIXIMAB
     Indication: Foetal exposure during pregnancy
     Route: 065
  50. ISOPROPYL ALCOHOL [Suspect]
     Active Substance: ISOPROPYL ALCOHOL
     Indication: Foetal exposure during pregnancy
     Dosage: LIQUID TOPICAL
     Route: 065
  51. LAMOTRIGINE [Suspect]
     Active Substance: LAMOTRIGINE
     Indication: Foetal exposure during pregnancy
     Route: 065
  52. MAGNESIUM CITRATE [Suspect]
     Active Substance: MAGNESIUM CITRATE
     Indication: Foetal exposure during pregnancy
     Route: 065
  53. METFORMIN HYDROCHLORIDE\SITAGLIPTIN PHOSPHATE [Suspect]
     Active Substance: METFORMIN HYDROCHLORIDE\SITAGLIPTIN PHOSPHATE
     Indication: Foetal exposure during pregnancy
     Route: 065
  54. METHOTREXATE SODIUM [Suspect]
     Active Substance: METHOTREXATE SODIUM
     Indication: Foetal exposure during pregnancy
     Dosage: SOLUTION INTRAARTERIAL
     Route: 065
  55. METHOTREXATE SODIUM [Suspect]
     Active Substance: METHOTREXATE SODIUM
     Route: 065
  56. METHYLPREDNISOLONE SODIUM SUCCINATE [Suspect]
     Active Substance: METHYLPREDNISOLONE SODIUM SUCCINATE
     Indication: Foetal exposure during pregnancy
     Route: 065
  57. MINOCYCLINE HYDROCHLORIDE [Suspect]
     Active Substance: MINOCYCLINE HYDROCHLORIDE
     Indication: Foetal exposure during pregnancy
     Route: 065
  58. MYOCHRYSINE [Suspect]
     Active Substance: GOLD SODIUM THIOMALATE
     Indication: Foetal exposure during pregnancy
     Dosage: SOLUTION INTRAMUSCULAR, MOTHER ROUTE OF ADMIN: INTRAMUSCULAR
     Route: 065
  59. NAPROXEN [Suspect]
     Active Substance: NAPROXEN
     Indication: Foetal exposure during pregnancy
     Route: 065
  60. NAPROXEN SODIUM [Suspect]
     Active Substance: NAPROXEN SODIUM
     Indication: Foetal exposure during pregnancy
     Route: 065
  61. NUCALA [Suspect]
     Active Substance: MEPOLIZUMAB
     Indication: Foetal exposure during pregnancy
     Route: 065
  62. ORENCIA [Suspect]
     Active Substance: ABATACEPT
     Indication: Foetal exposure during pregnancy
     Dosage: MOTHER ROUTE OF ADMIN INTRAVENOUS BOLUS
     Route: 065
  63. OXYCODONE [Suspect]
     Active Substance: OXYCODONE
     Indication: Foetal exposure during pregnancy
     Route: 065
  64. OXYCODONE TEREPHTHALATE [Suspect]
     Active Substance: OXYCODONE TEREPHTHALATE
     Indication: Foetal exposure during pregnancy
     Route: 065
  65. PHENYLEPHRINE HYDROCHLORIDE [Suspect]
     Active Substance: PHENYLEPHRINE HYDROCHLORIDE
     Indication: Foetal exposure during pregnancy
     Dosage: MOTHER ROUTE OF ADMIN INTRAMUSCULAR
     Route: 065
  66. PHTHALYLSULFATHIAZOLE [Suspect]
     Active Substance: PHTHALYLSULFATHIAZOLE
     Indication: Foetal exposure during pregnancy
     Route: 065
  67. PREDNISONE [Suspect]
     Active Substance: PREDNISONE
     Indication: Foetal exposure during pregnancy
     Route: 065
  68. PSEUDOEPHEDRINE HYDROCHLORIDE [Suspect]
     Active Substance: PSEUDOEPHEDRINE HYDROCHLORIDE
     Indication: Foetal exposure during pregnancy
     Route: 065
  69. RAMIPRIL [Suspect]
     Active Substance: RAMIPRIL
     Indication: Foetal exposure during pregnancy
     Route: 065
  70. CETIRIZINE HYDROCHLORIDE\PSEUDOEPHEDRINE HYDROCHLORIDE [Suspect]
     Active Substance: CETIRIZINE HYDROCHLORIDE\PSEUDOEPHEDRINE HYDROCHLORIDE
     Indication: Foetal exposure during pregnancy
     Dosage: EXTENDED RELEASE
     Route: 065
  71. RITUXIMAB [Suspect]
     Active Substance: RITUXIMAB
     Indication: Foetal exposure during pregnancy
     Route: 065
  72. ATOMOXETINE HYDROCHLORIDE [Suspect]
     Active Substance: ATOMOXETINE HYDROCHLORIDE
     Indication: Foetal exposure during pregnancy
     Route: 065
  73. HYDROCORTISONE [Suspect]
     Active Substance: HYDROCORTISONE
     Indication: Foetal exposure during pregnancy
     Route: 065
  74. SIMPONI [Suspect]
     Active Substance: GOLIMUMAB
     Indication: Foetal exposure during pregnancy
     Dosage: SOLUTION SUBCUTANEOUS MOTHER ROUTE OF ADMIN SUBCUTANEOUS
     Route: 065
  75. SULFASALAZINE [Suspect]
     Active Substance: SULFASALAZINE
     Indication: Foetal exposure during pregnancy
     Route: 065
  76. TOPIRAMATE [Suspect]
     Active Substance: TOPIRAMATE
     Indication: Foetal exposure during pregnancy
     Route: 065
  77. VITAMIN C [Suspect]
     Active Substance: ASCORBIC ACID
     Indication: Foetal exposure during pregnancy
     Route: 065
  78. XELJANZ [Suspect]
     Active Substance: TOFACITINIB CITRATE
     Indication: Foetal exposure during pregnancy
     Route: 065
  79. ZINC GLUCONATE [Suspect]
     Active Substance: ZINC GLUCONATE
     Indication: Foetal exposure during pregnancy
     Route: 065
  80. ALENDRONIC ACID [Suspect]
     Active Substance: ALENDRONIC ACID
     Indication: Product used for unknown indication
     Route: 048
  81. ATOMOXETINE [Suspect]
     Active Substance: ATOMOXETINE
     Indication: Product used for unknown indication
     Route: 065
  82. DICLOFENAC SODIUM [Suspect]
     Active Substance: DICLOFENAC SODIUM
     Indication: Foetal exposure during pregnancy
     Route: 065
  83. HYDROCORTISONE [Suspect]
     Active Substance: HYDROCORTISONE
     Indication: Product used for unknown indication
     Route: 065
  84. LAMICTAL [Suspect]
     Active Substance: LAMOTRIGINE
     Indication: Product used for unknown indication
     Route: 065
  85. MINOCYCLINE [Suspect]
     Active Substance: MINOCYCLINE HYDROCHLORIDE
     Indication: Product used for unknown indication
     Route: 065
  86. NICOTINAMIDE [Suspect]
     Active Substance: NIACINAMIDE
     Indication: Product used for unknown indication
     Route: 065
  87. PSEUDOEPHEDRINE [Suspect]
     Active Substance: PSEUDOEPHEDRINE
     Indication: Product used for unknown indication
     Route: 065
  88. ZINC CITRATE [Suspect]
     Active Substance: ZINC CITRATE
     Indication: Product used for unknown indication
     Route: 065
  89. HYDROCORTISONE [Suspect]
     Active Substance: HYDROCORTISONE
     Indication: Foetal exposure during pregnancy
     Route: 065
  90. DICLOFENAC POTASSIUM [Suspect]
     Active Substance: DICLOFENAC POTASSIUM
     Indication: Foetal exposure during pregnancy
     Route: 065

REACTIONS (2)
  - Congenital anomaly [Unknown]
  - Foetal exposure during pregnancy [Unknown]
